FAERS Safety Report 24527873 (Version 1)
Quarter: 2024Q4

REPORT INFORMATION
  Report Type: Spontaneous
  Country: US (occurrence: US)
  Receive Date: 20241021
  Receipt Date: 20241021
  Transmission Date: 20250114
  Serious: Yes (Other)
  Sender: DR REDDYS
  Company Number: US-DRL-USA-LIT/USA/24/0015322

PATIENT
  Age: 30 Year
  Sex: Female

DRUGS (4)
  1. LEVETIRACETAM [Suspect]
     Active Substance: LEVETIRACETAM
     Indication: Drug withdrawal convulsions
  2. NALOXONE [Suspect]
     Active Substance: NALOXONE
     Indication: Hypoxia
  3. NALOXONE [Suspect]
     Active Substance: NALOXONE
     Indication: Substance abuse
  4. NALOXONE [Suspect]
     Active Substance: NALOXONE
     Indication: Schizophrenia

REACTIONS (2)
  - Drug ineffective [Unknown]
  - Product use in unapproved indication [Unknown]
